FAERS Safety Report 5261470-2 (Version None)
Quarter: 2007Q1

REPORT INFORMATION
  Report Type: 
  Country: None (occurrence: None)
  Receive Date: 20070307
  Receipt Date: 20070222
  Transmission Date: 20070707
  Serious: Yes (Disabling, Other)
  Sender: FDA-Public Use
  Company Number: 2007SP003339

PATIENT
  Age: 21 Year
  Sex: Male
  Weight: 73 kg

DRUGS (1)
  1. DIPROSONE(BETAMETHASONE SODIUM PHOSPHATE/ DIPROPIONATE) [Suspect]
     Indication: RHINITIS ALLERGIC
     Dosage: 1 ML; ONCE; IM
     Route: 030
     Dates: start: 20070221

REACTIONS (3)
  - BRONCHOSPASM [None]
  - URTICARIA [None]
  - VOMITING [None]
